FAERS Safety Report 14569493 (Version 1)
Quarter: 2018Q1

REPORT INFORMATION
  Report Type: Spontaneous
  Country: US (occurrence: US)
  Receive Date: 20180224
  Receipt Date: 20180224
  Transmission Date: 20180509
  Serious: Yes (Hospitalization)
  Sender: FDA-Public Use
  Company Number: US-ROCHE-2079328

PATIENT
  Sex: Male

DRUGS (8)
  1. LUCENTIS [Suspect]
     Active Substance: RANIBIZUMAB
     Indication: NEOVASCULAR AGE-RELATED MACULAR DEGENERATION
     Route: 065
  2. TAMSULOSIN HCL [Concomitant]
     Active Substance: TAMSULOSIN HYDROCHLORIDE
     Route: 065
  3. AMLODIPINE BENZENESULFONATE [Concomitant]
     Route: 065
  4. CEPHALEXIN. [Concomitant]
     Active Substance: CEPHALEXIN
     Route: 065
  5. LEVOTHYROXINE. [Concomitant]
     Active Substance: LEVOTHYROXINE
     Route: 065
  6. WARFARIN SODIUM. [Concomitant]
     Active Substance: WARFARIN SODIUM
     Route: 065
  7. LISINOPRIL. [Concomitant]
     Active Substance: LISINOPRIL
     Route: 065
  8. METOPROLOL TARTRATE. [Concomitant]
     Active Substance: METOPROLOL TARTRATE
     Route: 065

REACTIONS (2)
  - Hip fracture [Not Recovered/Not Resolved]
  - Fall [Unknown]
